FAERS Safety Report 24363041 (Version 6)
Quarter: 2025Q2

REPORT INFORMATION
  Report Type: Report from Study
  Country: US (occurrence: US)
  Receive Date: 20240925
  Receipt Date: 20250520
  Transmission Date: 20250717
  Serious: Yes (Other)
  Sender: SUNOVION
  Company Number: US-SUMITOMO PHARMA SWITZERLAND GMBH-2024SPA002371

PATIENT

DRUGS (28)
  1. ORGOVYX [Suspect]
     Active Substance: RELUGOLIX
     Indication: Prostate cancer
     Dosage: 360 MG, SINGLE
     Route: 048
     Dates: start: 20240215, end: 20240215
  2. ORGOVYX [Suspect]
     Active Substance: RELUGOLIX
     Dosage: 120 MG, QD
     Route: 048
     Dates: start: 20240216
  3. ATORVASTATIN [Suspect]
     Active Substance: ATORVASTATIN
     Route: 065
  4. ASPIRIN [Concomitant]
     Active Substance: ASPIRIN
     Route: 065
  5. FENOFIBRATE [Concomitant]
     Active Substance: FENOFIBRATE
     Route: 065
  6. FERROUS GLUCONATE [Concomitant]
     Active Substance: FERROUS GLUCONATE
     Route: 065
  7. FLOMAX [Concomitant]
     Active Substance: TAMSULOSIN HYDROCHLORIDE
     Route: 065
  8. FOLIC ACID [Concomitant]
     Active Substance: FOLIC ACID
     Route: 065
  9. GLUCOSAMINE [Concomitant]
     Active Substance: GLUCOSAMINE
     Route: 065
  10. LIPITOR [Concomitant]
     Active Substance: ATORVASTATIN CALCIUM
     Route: 065
  11. LOSARTAN [Concomitant]
     Active Substance: LOSARTAN
     Route: 065
  12. METOPROLOL SUCCINATE [Concomitant]
     Active Substance: METOPROLOL SUCCINATE
     Route: 065
  13. MYRBETRIQ [Concomitant]
     Active Substance: MIRABEGRON
     Route: 065
  14. DIETARY SUPPLEMENT [Concomitant]
     Active Substance: DIETARY SUPPLEMENT
     Route: 065
  15. PROTONIX [Concomitant]
     Active Substance: PANTOPRAZOLE SODIUM
     Route: 065
  16. TYLENOL EXTRA STRENGTH [Concomitant]
     Active Substance: ACETAMINOPHEN
     Route: 065
  17. VITAMIN B12 [Concomitant]
     Active Substance: CYANOCOBALAMIN
     Route: 065
  18. VITAMIN E [Concomitant]
     Active Substance: .ALPHA.-TOCOPHEROL
     Route: 065
  19. XARELTO [Concomitant]
     Active Substance: RIVAROXABAN
     Route: 065
  20. ZETIA [Concomitant]
     Active Substance: EZETIMIBE
     Route: 065
  21. NUBEQA [Concomitant]
     Active Substance: DAROLUTAMIDE
     Dosage: 300 MG, BID
     Dates: start: 20241219
  22. DIGOXIN [Concomitant]
     Active Substance: DIGOXIN
     Route: 065
  23. HYDROCHLOROTHIAZIDE [Concomitant]
     Active Substance: HYDROCHLOROTHIAZIDE
     Route: 065
  24. TOLNAFTATE [Concomitant]
     Active Substance: TOLNAFTATE
     Route: 065
  25. LIDOCAINE [Concomitant]
     Active Substance: LIDOCAINE
     Route: 065
  26. LYRICA [Concomitant]
     Active Substance: PREGABALIN
     Route: 065
  27. NITROSTAT [Concomitant]
     Active Substance: NITROGLYCERIN
     Route: 065
  28. NORCO [Concomitant]
     Active Substance: ACETAMINOPHEN\HYDROCODONE BITARTRATE
     Route: 065

REACTIONS (17)
  - Cataract [Unknown]
  - Dental care [Unknown]
  - Sciatica [Not Recovered/Not Resolved]
  - Carpal tunnel syndrome [Unknown]
  - Thermal burn [Unknown]
  - Disease progression [Unknown]
  - Prostatic specific antigen increased [Unknown]
  - Pollakiuria [Unknown]
  - Drug interaction [Unknown]
  - Dysstasia [Unknown]
  - Amnesia [Unknown]
  - Dizziness [Unknown]
  - Musculoskeletal stiffness [Unknown]
  - Pain in extremity [Unknown]
  - Back pain [Unknown]
  - Neck pain [Unknown]
  - Product dose omission issue [Unknown]
